FAERS Safety Report 15991523 (Version 1)
Quarter: 2019Q1

REPORT INFORMATION
  Report Type: Spontaneous
  Country: NL (occurrence: NL)
  Receive Date: 20190221
  Receipt Date: 20190221
  Transmission Date: 20190418
  Serious: Yes (Congenital Anomaly)
  Sender: FDA-Public Use
  Company Number: NL-GLAXOSMITHKLINE-NL2019030145

PATIENT
  Age: 16 Month
  Sex: Female

DRUGS (1)
  1. MALARONE [Suspect]
     Active Substance: ATOVAQUONE\PROGUANIL HYDROCHLORIDE
     Indication: MALARIA PROPHYLAXIS
     Dosage: UNK
     Route: 064
     Dates: start: 201312

REACTIONS (2)
  - Foetal exposure during pregnancy [Unknown]
  - Ataxia [Recovering/Resolving]

NARRATIVE: CASE EVENT DATE: 2016
